FAERS Safety Report 5597178-3 (Version None)
Quarter: 2008Q1

REPORT INFORMATION
  Report Type: 
  Country: None (occurrence: None)
  Receive Date: 20080121
  Receipt Date: 20080109
  Transmission Date: 20080703
  Serious: Yes (Hospitalization)
  Sender: FDA-Public Use
  Company Number: KR-WYE-H01533007

PATIENT
  Sex: Male
  Weight: 65 kg

DRUGS (8)
  1. TEMSIROLIMUS [Suspect]
     Indication: RENAL CELL CARCINOMA
     Route: 042
     Dates: start: 20071026
  2. TEMSIROLIMUS [Suspect]
     Route: 042
     Dates: start: 20071221
  3. NAPROXEN [Concomitant]
     Dosage: TWICE A DAY (DOSE NOT PROVIDED)
     Route: 048
     Dates: start: 20071030
  4. ACYCLOVIR [Concomitant]
     Indication: SKIN REACTION
     Dosage: DOSE AND FREQUENCY NOT PROVIDED
     Route: 061
     Dates: start: 20071123
  5. MAGNESIUM OXIDE [Concomitant]
     Indication: CONSTIPATION
     Dosage: 2 TIMES, TWICE A DAY (DOSE NOT SPECIFIED)
     Route: 048
     Dates: start: 20071120
  6. MUPIROCIN [Concomitant]
     Indication: SKIN REACTION
     Dosage: DOSE AND FREQUENCY NOT PROVIDED
     Route: 061
     Dates: start: 20071123
  7. OXYCODONE HYDROCHLORIDE [Concomitant]
     Indication: PELVIC PAIN
     Route: 048
     Dates: start: 20071119
  8. REBAMIPIDE [Concomitant]
     Indication: PROPHYLAXIS
     Dosage: THREE TIMES A DAY (DOSE NOT PROVIDED)
     Route: 048
     Dates: start: 20071030

REACTIONS (2)
  - INTESTINAL PERFORATION [None]
  - PERITONITIS [None]
